APPROVED DRUG PRODUCT: ALDORIL 25
Active Ingredient: HYDROCHLOROTHIAZIDE; METHYLDOPA
Strength: 25MG;250MG
Dosage Form/Route: TABLET;ORAL
Application: N013402 | Product #002
Applicant: MERCK AND CO INC
Approved: Approved Prior to Jan 1, 1982 | RLD: No | RS: No | Type: DISCN